FAERS Safety Report 8358280-6 (Version None)
Quarter: 2012Q2

REPORT INFORMATION
  Report Type: 
  Country: None (occurrence: None)
  Receive Date: 20120514
  Receipt Date: 20120509
  Transmission Date: 20120825
  Serious: Yes (Other)
  Sender: FDA-Public Use
  Company Number: CA-PFIZER INC-2012086169

PATIENT
  Sex: Male

DRUGS (2)
  1. ASPIRIN W/CODEINE [Concomitant]
     Indication: PAIN
     Dosage: UNK
  2. LYRICA [Suspect]
     Indication: FIBROMYALGIA
     Dosage: 300 MG, 2X/DAY
     Route: 048
     Dates: start: 20110401, end: 20120401

REACTIONS (6)
  - ALOPECIA [None]
  - ABNORMAL DREAMS [None]
  - ORAL HERPES [None]
  - SARCOIDOSIS [None]
  - ECZEMA [None]
  - SKIN IRRITATION [None]
